FAERS Safety Report 9839264 (Version 1)
Quarter: 2014Q1

REPORT INFORMATION
  Report Type: Spontaneous
  Country: US (occurrence: None)
  Receive Date: 20140116
  Receipt Date: 20140116
  Transmission Date: 20141002
  Serious: Yes (Other)
  Sender: FDA-Public Use
  Company Number: ABR_01384_2014

PATIENT
  Age: 78 Year
  Sex: Female
  Weight: 79.83 kg

DRUGS (7)
  1. EDARBI [Suspect]
     Indication: BLOOD PRESSURE ABNORMAL
     Dosage: (80 MG QD ORAL)
     Route: 048
     Dates: start: 2012
  2. HYDRALAZINE [Suspect]
     Indication: PERICARDIAL EFFUSION
     Dosage: (25 MG BID)
     Dates: start: 20140105
  3. B12-VITAMIN (UNKNOWN) [Concomitant]
  4. INTEGRA PLUS (UNKNOWN) [Concomitant]
  5. VITAMIN D /00107901/ (UNKNOWN) [Concomitant]
  6. ASPIRIN (UNKNOWN) [Concomitant]
  7. DIANEANL LOW CALCIUM PERITONEAL DIALYSIS (UNKNOWN) [Concomitant]

REACTIONS (2)
  - Dialysis [None]
  - Blood pressure increased [None]
